FAERS Safety Report 7315405-9 (Version None)
Quarter: 2011Q1

REPORT INFORMATION
  Report Type: 
  Country: None (occurrence: None)
  Receive Date: 20110225
  Receipt Date: 20110223
  Transmission Date: 20110831
  Serious: Yes (Hospitalization, Other)
  Sender: FDA-Public Use
  Company Number: A0911262A

PATIENT
  Age: 74 Year
  Sex: Male

DRUGS (4)
  1. BUDESONIDE [Concomitant]
     Route: 055
  2. UNKNOWN [Concomitant]
  3. XOPENEX [Concomitant]
     Route: 055
  4. PROMACTA [Suspect]
     Indication: AUTOIMMUNE THROMBOCYTOPENIA
     Dosage: 25MG PER DAY
     Route: 048
     Dates: start: 20091210, end: 20101201

REACTIONS (2)
  - PNEUMONIA [None]
  - ASTHMA [None]
